FAERS Safety Report 25711916 (Version 1)
Quarter: 2025Q3

REPORT INFORMATION
  Report Type: Spontaneous
  Country: EU (occurrence: EU)
  Receive Date: 20250821
  Receipt Date: 20250821
  Transmission Date: 20251021
  Serious: Yes (Other)
  Sender: JOHNSON AND JOHNSON
  Company Number: EU-JNJFOC-20250814839

PATIENT
  Sex: Female

DRUGS (3)
  1. RISPERDAL [Suspect]
     Active Substance: RISPERIDONE
     Indication: Product used for unknown indication
     Route: 065
  2. RISPERDAL [Suspect]
     Active Substance: RISPERIDONE
     Indication: Product used for unknown indication
     Route: 065
  3. RISPERDAL [Suspect]
     Active Substance: RISPERIDONE

REACTIONS (4)
  - Mental impairment [Unknown]
  - Mental disorder [Unknown]
  - Feeling abnormal [Unknown]
  - Drug ineffective [Unknown]
